FAERS Safety Report 6399986-8 (Version None)
Quarter: 2009Q4

REPORT INFORMATION
  Report Type: 
  Country: None (occurrence: None)
  Receive Date: 20091014
  Receipt Date: 20091005
  Transmission Date: 20100525
  Serious: Yes (Hospitalization, Other)
  Sender: FDA-Public Use
  Company Number: GB-ELI_LILLY_AND_COMPANY-GB200910000786

PATIENT
  Age: 13 Year
  Sex: Female

DRUGS (3)
  1. SOMATROPIN [Suspect]
     Dosage: 1.2 MG, DAILY (1/D)
     Route: 058
     Dates: start: 20040101, end: 20060901
  2. SOMATROPIN [Suspect]
     Dosage: 1.2 MG, DAILY (1/D)
     Route: 058
     Dates: start: 20070801, end: 20090101
  3. LEVOTHYROXINE SODIUM [Concomitant]
     Dosage: 50 UG, DAILY (1/D)
     Route: 048

REACTIONS (2)
  - CEREBROVASCULAR ACCIDENT [None]
  - MENINGIOMA [None]
